FAERS Safety Report 10261265 (Version 1)
Quarter: 2014Q2

REPORT INFORMATION
  Report Type: Spontaneous
  Country: US (occurrence: US)
  Receive Date: 20140626
  Receipt Date: 20140626
  Transmission Date: 20141212
  Serious: Yes (Hospitalization)
  Sender: FDA-Public Use
  Company Number: US-SA-2014SA079511

PATIENT
  Sex: 0

DRUGS (2)
  1. APIDRA [Suspect]
     Indication: PRODUCT USED FOR UNKNOWN INDICATION
     Route: 065
  2. HUMALOG [Concomitant]

REACTIONS (2)
  - Diabetic ketoacidosis [Unknown]
  - Product quality issue [Unknown]
